FAERS Safety Report 21194326 (Version 1)
Quarter: 2022Q3

REPORT INFORMATION
  Report Type: Spontaneous
  Country: US (occurrence: None)
  Receive Date: 20220809
  Receipt Date: 20220809
  Transmission Date: 20221027
  Serious: Yes (Other)
  Sender: FDA-Public Use
  Company Number: None

PATIENT
  Age: 51 Year
  Sex: Female
  Weight: 62.55 kg

DRUGS (14)
  1. BRIMONIDINE TARTRATE\TIMOLOL MALEATE [Suspect]
     Active Substance: BRIMONIDINE TARTRATE\TIMOLOL MALEATE
     Indication: Intraocular pressure increased
     Dosage: OTHER QUANTITY : 1 DROP(S);?FREQUENCY : TWICE A DAY;?
     Route: 047
     Dates: start: 20220722, end: 20220728
  2. Potassium 20 meq [Concomitant]
  3. LATANOPROST [Concomitant]
     Active Substance: LATANOPROST
  4. Bupropion hcl sr 150 meg [Concomitant]
  5. FUROSEMIDE [Concomitant]
     Active Substance: FUROSEMIDE
  6. PREDNISOLONE ACETATE [Concomitant]
     Active Substance: PREDNISOLONE ACETATE
  7. cyclopentoloate 1% [Concomitant]
  8. topiramate 100meg [Concomitant]
  9. magesium [Concomitant]
  10. VITAMIN B [Concomitant]
     Active Substance: VITAMIN B
  11. VITAMIN E [Concomitant]
     Active Substance: .ALPHA.-TOCOPHEROL
  12. VITAMIN D [Concomitant]
     Active Substance: VITAMIN D NOS
  13. collagen type II [Concomitant]
  14. PRASTERONE [Concomitant]
     Active Substance: PRASTERONE

REACTIONS (7)
  - Product substitution issue [None]
  - Rash [None]
  - Urticaria [None]
  - Rash [None]
  - Rash [None]
  - Pruritus [None]
  - Scab [None]

NARRATIVE: CASE EVENT DATE: 20220722
